FAERS Safety Report 6707259-6 (Version None)
Quarter: 2010Q2

REPORT INFORMATION
  Report Type: 
  Country: None (occurrence: None)
  Receive Date: 20100503
  Receipt Date: 20090413
  Transmission Date: 20101027
  Serious: No
  Sender: FDA-Public Use
  Company Number: US-ASTRAZENECA-2009UW04319

PATIENT
  Age: 56 Year
  Sex: Female
  Weight: 97.1 kg

DRUGS (4)
  1. NEXIUM [Suspect]
     Indication: DYSPEPSIA
     Route: 048
     Dates: start: 19990101
  2. DIOVAN [Concomitant]
  3. ASACOL [Concomitant]
  4. CLINDAMYCIN [Concomitant]

REACTIONS (8)
  - ABDOMINAL DISCOMFORT [None]
  - ABDOMINAL PAIN UPPER [None]
  - COLITIS ULCERATIVE [None]
  - DIVERTICULITIS [None]
  - MYALGIA [None]
  - NAUSEA [None]
  - PRODUCT TASTE ABNORMAL [None]
  - RETCHING [None]
